FAERS Safety Report 9564994 (Version 1)
Quarter: 2013Q3

REPORT INFORMATION
  Report Type: Spontaneous
  Country: FR (occurrence: FR)
  Receive Date: 20130930
  Receipt Date: 20130930
  Transmission Date: 20140515
  Serious: Yes (Hospitalization)
  Sender: FDA-Public Use
  Company Number: FR-JNJFOC-20130916046

PATIENT
  Age: 82 Year
  Sex: Female

DRUGS (5)
  1. TOPALGIC [Suspect]
     Indication: PAIN
     Route: 048
     Dates: end: 20120220
  2. ZOLPIDEM [Suspect]
     Indication: INSOMNIA
     Route: 048
     Dates: end: 20120220
  3. TEMESTA [Suspect]
     Indication: PRODUCT USED FOR UNKNOWN INDICATION
     Route: 048
  4. ACTONEL [Concomitant]
     Indication: PRODUCT USED FOR UNKNOWN INDICATION
     Route: 048
  5. DOLIPRANE [Concomitant]
     Indication: PRODUCT USED FOR UNKNOWN INDICATION
     Route: 065

REACTIONS (4)
  - Fall [Recovered/Resolved]
  - Disorientation [Recovered/Resolved]
  - Visual impairment [Unknown]
  - Asthenia [Recovered/Resolved]
